FAERS Safety Report 6037634-7 (Version None)
Quarter: 2009Q1

REPORT INFORMATION
  Report Type: 
  Country: None (occurrence: None)
  Receive Date: 20090114
  Receipt Date: 20090112
  Transmission Date: 20090719
  Serious: No
  Sender: FDA-Public Use
  Company Number: US-B.I. PHARMACEUTICALS,INC./RIDGEFIELD-2009-BP-00394BP

PATIENT
  Sex: Female

DRUGS (4)
  1. SPIRIVA [Suspect]
     Indication: EMPHYSEMA
     Dosage: 18MCG
     Route: 055
     Dates: start: 20081229
  2. CLARITIN [Concomitant]
     Indication: MULTIPLE ALLERGIES
  3. SUDAFED 12 HOUR [Concomitant]
     Indication: MULTIPLE ALLERGIES
  4. ASPIRIN [Concomitant]

REACTIONS (1)
  - INCREASED UPPER AIRWAY SECRETION [None]
